FAERS Safety Report 11614379 (Version 1)
Quarter: 2015Q4

REPORT INFORMATION
  Report Type: Spontaneous
  Country: US (occurrence: US)
  Receive Date: 20151009
  Receipt Date: 20151009
  Transmission Date: 20160304
  Serious: No
  Sender: FDA-Public Use
  Company Number: US-ASTRAZENECA-2015SE94533

PATIENT
  Age: 68 Year
  Sex: Female
  Weight: 83.9 kg

DRUGS (4)
  1. DIOVAN [Concomitant]
     Active Substance: VALSARTAN
     Route: 065
  2. BYETTA [Suspect]
     Active Substance: EXENATIDE
     Indication: TYPE 2 DIABETES MELLITUS
     Route: 058
  3. BYETTA [Suspect]
     Active Substance: EXENATIDE
     Indication: TYPE 2 DIABETES MELLITUS
     Dosage: 250 MCG / 1.2 ML PEN
     Route: 058
     Dates: start: 201509
  4. HUMALOG [Concomitant]
     Active Substance: INSULIN LISPRO
     Route: 065

REACTIONS (4)
  - Drug dose omission [Unknown]
  - Drug ineffective [Unknown]
  - Appetite disorder [Unknown]
  - Product quality issue [Unknown]
